FAERS Safety Report 19763804 (Version 1)
Quarter: 2021Q3

REPORT INFORMATION
  Report Type: Spontaneous
  Country: US (occurrence: US)
  Receive Date: 20210830
  Receipt Date: 20210830
  Transmission Date: 20211014
  Serious: Yes (Hospitalization, Other)
  Sender: FDA-Public Use
  Company Number: US-BIOMARINAP-US-2021-138200

PATIENT
  Age: 6 Year
  Sex: Female
  Weight: 16.9 kg

DRUGS (1)
  1. BRINEURA [Suspect]
     Active Substance: CERLIPONASE ALFA
     Indication: NEURONAL CEROID LIPOFUSCINOSIS
     Dosage: UNK, QOW
     Route: 020
     Dates: start: 20210817

REACTIONS (2)
  - White blood cell count increased [Recovering/Resolving]
  - Central nervous system infection [Recovering/Resolving]
